FAERS Safety Report 4833750-3 (Version None)
Quarter: 2005Q4

REPORT INFORMATION
  Report Type: 
  Country: None (occurrence: None)
  Receive Date: 20051116
  Receipt Date: 20051116
  Transmission Date: 20060501
  Serious: Yes (Death, Hospitalization)
  Sender: FDA-Public Use
  Company Number: None

PATIENT
  Sex: Female
  Weight: 44.8 kg

DRUGS (5)
  1. CYTARABINE [Suspect]
     Indication: ACUTE MYELOID LEUKAEMIA
     Dosage: SEE IMAGE
     Dates: start: 20051005, end: 20051009
  2. GEMTUZUMAB OZOGAMICIN MYLOTARG [Suspect]
     Dosage: SEE IMAGE
     Dates: start: 20051011, end: 20051011
  3. GEMTUZUMAB OZOGAMICIN MYLOTARG [Suspect]
     Dosage: SEE IMAGE
     Dates: start: 20051005
  4. MITOXANTRONE HYDROCHLORIDE [Suspect]
     Dosage: SEE IMAGE
     Dates: start: 20051007, end: 20051010
  5. MITOXANTRONE HYDROCHLORIDE [Suspect]
     Dosage: SEE IMAGE
     Dates: start: 20051005

REACTIONS (9)
  - ACUTE RESPIRATORY DISTRESS SYNDROME [None]
  - BLOOD CULTURE POSITIVE [None]
  - ENTEROCOCCAL INFECTION [None]
  - GINGIVAL BLEEDING [None]
  - MENORRHAGIA [None]
  - MULTI-ORGAN FAILURE [None]
  - OESOPHAGITIS [None]
  - PYREXIA [None]
  - SEPTIC SHOCK [None]
